FAERS Safety Report 23484024 (Version 2)
Quarter: 2024Q1

REPORT INFORMATION
  Report Type: Spontaneous
  Country: FI (occurrence: FI)
  Receive Date: 20240205
  Receipt Date: 20240219
  Transmission Date: 20240410
  Serious: Yes (Other)
  Sender: FDA-Public Use
  Company Number: FI-FIMEA-202400120

PATIENT
  Age: 79 Year
  Sex: Male

DRUGS (17)
  1. TAVNEOS [Suspect]
     Active Substance: AVACOPAN
     Indication: Vasculitis
     Dosage: 30 MILLIGRAM, Q12H
     Route: 048
     Dates: start: 20231222, end: 20231229
  2. PANTOPRAZOLE [Concomitant]
     Active Substance: PANTOPRAZOLE
     Indication: Gastrointestinal disorder prophylaxis
     Dosage: 40 MILLIGRAM, QD
     Route: 065
     Dates: start: 20231213
  3. FINASTERID ORION [Concomitant]
     Indication: Product used for unknown indication
     Dosage: 5 MILLIGRAM, QD
     Route: 065
  4. ALFACALCIDOL ORIFARM [Concomitant]
     Indication: Hypocalcaemia
     Dosage: 1 MICROGRAM, Q12H
     Route: 048
     Dates: start: 202312
  5. CALCIUM\CHOLECALCIFEROL [Concomitant]
     Active Substance: CALCIUM\CHOLECALCIFEROL
     Indication: Hypocalcaemia
     Dosage: 2 DOSAGE FORM
     Route: 048
     Dates: start: 202312
  6. ZOPICLONE ORION [Concomitant]
     Indication: Insomnia
     Dosage: 7.5 MILLIGRAM, AS NECESSARY
     Route: 048
  7. PROTAPHANE [Concomitant]
     Active Substance: INSULIN HUMAN
     Indication: Blood glucose increased
     Dosage: 6 INTERNATIONAL UNIT, QD
     Route: 058
     Dates: start: 202312
  8. SIMVASTATIN [Concomitant]
     Active Substance: SIMVASTATIN
     Indication: Hypercholesterolaemia
     Dosage: 20MGX1
     Route: 065
  9. SIMVASTATIN [Concomitant]
     Active Substance: SIMVASTATIN
     Indication: Hypercholesterolaemia
  10. SILDENAFIL ORION [Concomitant]
     Indication: Product used for unknown indication
     Dosage: UNK
     Route: 048
  11. ACETAMINOPHEN [Concomitant]
     Active Substance: ACETAMINOPHEN
     Indication: Product used for unknown indication
     Dosage: 1-3 TABLETS/DAY AS NECESSARY
     Route: 048
  12. BISOPROLOL [Concomitant]
     Active Substance: BISOPROLOL\BISOPROLOL FUMARATE
     Dosage: 2.5MGX2
     Route: 048
     Dates: start: 202312
  13. FUROSEMIDE [Concomitant]
     Active Substance: FUROSEMIDE
     Indication: Product used for unknown indication
     Dosage: X1
     Route: 065
     Dates: start: 202312
  14. CYCLOPHOSPHAMIDE [Concomitant]
     Active Substance: CYCLOPHOSPHAMIDE
     Indication: Vasculitis
     Dosage: 500MGX1 SINGLE DOSE
     Dates: start: 20231222
  15. NYSTATIN ORIFARM [Concomitant]
     Indication: Product used for unknown indication
     Dosage: 1 MILLILITER, Q6H
     Route: 048
     Dates: start: 20240105
  16. DIPYRIDAMOLE [Concomitant]
     Active Substance: DIPYRIDAMOLE
     Indication: Cerebrovascular accident prophylaxis
     Dosage: 1 DOSAGE FORM
     Dates: start: 2011
  17. AMLODIPINE [Concomitant]
     Active Substance: AMLODIPINE BESYLATE
     Indication: Hypertension
     Dosage: UNK
     Dates: start: 202312

REACTIONS (1)
  - Thrombocytopenia [Recovering/Resolving]

NARRATIVE: CASE EVENT DATE: 20231227
